FAERS Safety Report 25231163 (Version 1)
Quarter: 2025Q2

REPORT INFORMATION
  Report Type: Spontaneous
  Country: US (occurrence: None)
  Receive Date: 20250423
  Receipt Date: 20250423
  Transmission Date: 20250717
  Serious: Yes (Disabling)
  Sender: FDA-CTU
  Company Number: None

PATIENT
  Age: 29 Year
  Sex: Male
  Weight: 87.75 kg

DRUGS (6)
  1. ORENCIA [Suspect]
     Active Substance: ABATACEPT
     Indication: Rheumatoid arthritis
     Dates: start: 20250331, end: 20250413
  2. METFORMIN [Concomitant]
     Active Substance: METFORMIN HYDROCHLORIDE
  3. MINOXIDIL [Concomitant]
     Active Substance: MINOXIDIL
  4. DUTASTERIDE [Concomitant]
     Active Substance: DUTASTERIDE
  5. FAMOTIDINE [Concomitant]
     Active Substance: FAMOTIDINE
  6. BACOLFEN [Concomitant]
     Active Substance: BACLOFEN

REACTIONS (7)
  - Infusion related reaction [None]
  - Rheumatoid arthritis [None]
  - Fatigue [None]
  - Somnolence [None]
  - Asthenia [None]
  - Dyspnoea [None]
  - Drug ineffective [None]

NARRATIVE: CASE EVENT DATE: 20250331
